FAERS Safety Report 14972200 (Version 1)
Quarter: 2018Q2

REPORT INFORMATION
  Report Type: Spontaneous
  Country: FR (occurrence: FR)
  Receive Date: 20180605
  Receipt Date: 20180605
  Transmission Date: 20180711
  Serious: Yes (Other)
  Sender: FDA-Public Use
  Company Number: FR-009507513-1805FRA014685

PATIENT
  Age: 26 Year
  Sex: Female

DRUGS (1)
  1. NEXPLANON [Suspect]
     Active Substance: ETONOGESTREL
     Indication: CONTRACEPTION
     Dosage: 1 DF, UNK
     Route: 058

REACTIONS (9)
  - Depression [Recovering/Resolving]
  - Somnolence [Recovering/Resolving]
  - Skin reaction [Recovered/Resolved]
  - Nervousness [Recovering/Resolving]
  - Implant site pain [Recovered/Resolved]
  - Increased appetite [Recovering/Resolving]
  - Insomnia [Recovering/Resolving]
  - Weight increased [Recovering/Resolving]
  - Sexual inhibition [Recovering/Resolving]
